FAERS Safety Report 16681450 (Version 1)
Quarter: 2019Q3

REPORT INFORMATION
  Report Type: Spontaneous
  Country: PT (occurrence: PT)
  Receive Date: 20190808
  Receipt Date: 20190808
  Transmission Date: 20191004
  Serious: Yes (Hospitalization, Other)
  Sender: FDA-Public Use
  Company Number: PT-AUROBINDO-AUR-APL-2019-046312

PATIENT

DRUGS (8)
  1. LORAZEPAM. [Suspect]
     Active Substance: LORAZEPAM
     Indication: BIPOLAR DISORDER
     Dosage: 5 MILLIGRAM, ONCE A DAY (2.5 MG, BID)
     Route: 065
  2. VALPROIC ACID. [Suspect]
     Active Substance: VALPROIC ACID
     Indication: BIPOLAR DISORDER
     Dosage: 1000 MILLIGRAM, ONCE A DAY (500 MG, BID)
     Route: 065
  3. TRIHEXYPHENIDYL [Suspect]
     Active Substance: TRIHEXYPHENIDYL
     Indication: PRODUCT USED FOR UNKNOWN INDICATION
     Dosage: 10 MILLIGRAM, ONCE A DAY
     Route: 065
  4. RISPERIDONE. [Suspect]
     Active Substance: RISPERIDONE
     Indication: PRODUCT USED FOR UNKNOWN INDICATION
     Dosage: 6 MILLIGRAM, ONCE A DAY (3 MG, BID)
     Route: 065
  5. FLUOXETINE [Suspect]
     Active Substance: FLUOXETINE HYDROCHLORIDE
     Indication: PRODUCT USED FOR UNKNOWN INDICATION
     Dosage: UNK
     Route: 065
  6. LEVODOPA+CARBIDOPA [Suspect]
     Active Substance: CARBIDOPA\LEVODOPA
     Indication: PRODUCT USED FOR UNKNOWN INDICATION
     Dosage: (4)ONCE A DAY, (100/25 MG, QID)
     Route: 065
  7. OLANZAPINE. [Suspect]
     Active Substance: OLANZAPINE
     Indication: BIPOLAR DISORDER
     Dosage: 20 MILLIGRAM, ONCE A DAY (10 MG, BID)
     Route: 065
  8. ARIPIPRAZOLE. [Suspect]
     Active Substance: ARIPIPRAZOLE
     Indication: PRODUCT USED FOR UNKNOWN INDICATION
     Dosage: 30 MILLIGRAM, ONCE A DAY (15 MG, BID)
     Route: 065

REACTIONS (20)
  - Psychiatric decompensation [Unknown]
  - Cognitive disorder [Recovering/Resolving]
  - Ataxia [Recovered/Resolved]
  - Normochromic normocytic anaemia [Unknown]
  - Mania [Unknown]
  - Locked-in syndrome [Recovered/Resolved]
  - Generalised tonic-clonic seizure [Unknown]
  - Musculoskeletal stiffness [Recovered/Resolved]
  - Autoimmune thyroiditis [Unknown]
  - Cerebral atrophy [Unknown]
  - Gait disturbance [Recovered/Resolved]
  - Confusional state [Unknown]
  - Mood swings [Unknown]
  - Transient aphasia [Unknown]
  - Thyroid mass [Unknown]
  - Parkinsonism [Unknown]
  - Central nervous system lesion [Unknown]
  - Depressed level of consciousness [Unknown]
  - Delirium [Unknown]
  - Tremor [Recovered/Resolved]
